FAERS Safety Report 26119499 (Version 4)
Quarter: 2025Q4

REPORT INFORMATION
  Report Type: Spontaneous
  Country: EU (occurrence: EU)
  Receive Date: 20251204
  Receipt Date: 20251227
  Transmission Date: 20260118
  Serious: Yes (Hospitalization, Other)
  Sender: AMGEN
  Company Number: None

PATIENT
  Age: 54 Year
  Sex: Female
  Weight: 48.8 kg

DRUGS (9)
  1. RAVICTI [Suspect]
     Active Substance: GLYCEROL PHENYLBUTYRATE
     Indication: Ornithine transcarbamoylase deficiency
     Dosage: 3.3 GRAM, ONCE DAILY
     Route: 048
     Dates: start: 20250415, end: 202506
  2. RAVICTI [Suspect]
     Active Substance: GLYCEROL PHENYLBUTYRATE
     Dosage: 3.3 GRAM, DAILY
     Route: 048
     Dates: start: 20250923, end: 20251107
  3. LACTULOSE [Concomitant]
     Active Substance: LACTULOSE
     Dosage: UNK
     Route: 065
  4. ARGININE VEYRON [Concomitant]
     Dosage: UNK
     Route: 065
  5. SODIUM BENZOATE [Concomitant]
     Active Substance: SODIUM BENZOATE
     Dosage: UNK
     Route: 065
  6. NICOPATCH [Concomitant]
     Active Substance: NICOTINE
     Dosage: UNK
     Route: 065
  7. LEVOTHYROXINE SODIUM [Concomitant]
     Active Substance: LEVOTHYROXINE SODIUM
     Dosage: UNK
     Route: 065
  8. CARVEDILOL [Concomitant]
     Active Substance: CARVEDILOL
     Dosage: UNK
     Route: 065
  9. CARVEDILOL [Concomitant]
     Active Substance: CARVEDILOL
     Dosage: UNK
     Route: 065

REACTIONS (3)
  - Weight decreased [Recovered/Resolved]
  - Food aversion [Recovering/Resolving]
  - Parosmia [Recovered/Resolved]

NARRATIVE: CASE EVENT DATE: 20250415
